FAERS Safety Report 4364930-1 (Version None)
Quarter: 2004Q2

REPORT INFORMATION
  Report Type: 
  Country: None (occurrence: None)
  Receive Date: 20040524
  Receipt Date: 20000808
  Transmission Date: 20050107
  Serious: Yes (Hospitalization)
  Sender: FDA-Public Use
  Company Number: PERIO-2000-0318

PATIENT
  Age: 57 Year
  Sex: Female

DRUGS (10)
  1. PERIOSTAT [Suspect]
     Indication: PERIODONTAL DISEASE
     Dosage: 20 MG, BID, PER ORAL
     Route: 048
     Dates: start: 19991101, end: 20000206
  2. PERIOSTAT [Suspect]
     Indication: PERIODONTITIS
     Dosage: 20 MG, BID, PER ORAL
     Route: 048
     Dates: start: 19991101, end: 20000206
  3. VITAMIN B COMPLEX CAP [Concomitant]
  4. VITAMIN E [Concomitant]
  5. VITAMIN B-12 [Concomitant]
  6. VITAMIN B6 [Concomitant]
  7. VITAMIN C (ASCORBIC ACID) [Concomitant]
  8. CALCIUM (CALCIUM) [Concomitant]
  9. ALLERGY INJECTION FOR MOLDS [Concomitant]
  10. GUAIFED (RESPAIRE-SR-120) [Concomitant]

REACTIONS (1)
  - THROMBOCYTOPENIA [None]
